FAERS Safety Report 5615739-X (Version None)
Quarter: 2008Q1

REPORT INFORMATION
  Report Type: 
  Country: None (occurrence: None)
  Receive Date: 20080206
  Receipt Date: 20080122
  Transmission Date: 20080703
  Serious: Yes (Other)
  Sender: FDA-Public Use
  Company Number: FR-BAYER-200812327GPV

PATIENT
  Age: 57 Year
  Sex: Male
  Weight: 74 kg

DRUGS (1)
  1. LEVITRA [Suspect]
     Indication: ERECTILE DYSFUNCTION
     Route: 048

REACTIONS (1)
  - HAEMORRHOIDS [None]
